FAERS Safety Report 23330484 (Version 1)
Quarter: 2023Q4

REPORT INFORMATION
  Report Type: Spontaneous
  Country: US (occurrence: None)
  Receive Date: 20231222
  Receipt Date: 20231222
  Transmission Date: 20240109
  Serious: Yes (Other)
  Sender: FDA-Public Use
  Company Number: US-ROCHE-3478355

PATIENT

DRUGS (1)
  1. TNKASE [Suspect]
     Active Substance: TENECTEPLASE
     Indication: Ischaemic stroke
     Dosage: NOT SURE ABOUT DOSE
     Route: 065

REACTIONS (3)
  - Infusion site discharge [Unknown]
  - Cerebral haemorrhage [Unknown]
  - Off label use [Unknown]
